FAERS Safety Report 8175678-X (Version None)
Quarter: 2012Q1

REPORT INFORMATION
  Report Type: 
  Country: None (occurrence: None)
  Receive Date: 20120301
  Receipt Date: 20090420
  Transmission Date: 20120608
  Serious: No
  Sender: FDA-Public Use
  Company Number: US-BIOGENIDEC-2009BI012307

PATIENT
  Age: 46 Year
  Sex: Male

DRUGS (5)
  1. AVONEX [Suspect]
     Indication: MULTIPLE SCLEROSIS
     Route: 030
     Dates: start: 20050202, end: 20071201
  2. TYSABRI [Concomitant]
     Indication: MULTIPLE SCLEROSIS
     Route: 042
     Dates: start: 20080728, end: 20080822
  3. AVONEX [Suspect]
     Route: 030
     Dates: start: 20090503, end: 20090901
  4. AVONEX [Suspect]
     Route: 030
     Dates: start: 20080101, end: 20080101
  5. AVONEX [Suspect]
     Route: 030
     Dates: start: 20080101, end: 20080101

REACTIONS (3)
  - INFLUENZA LIKE ILLNESS [None]
  - MUSCLE SPASMS [None]
  - GENERAL SYMPTOM [None]
